FAERS Safety Report 15362452 (Version 1)
Quarter: 2018Q3

REPORT INFORMATION
  Report Type: Spontaneous
  Country: US (occurrence: US)
  Receive Date: 20180907
  Receipt Date: 20180907
  Transmission Date: 20181010
  Serious: No
  Sender: FDA-Public Use
  Company Number: US-PFIZER INC-2018358784

PATIENT
  Age: 79 Year
  Sex: Female

DRUGS (1)
  1. CYTOMEL [Suspect]
     Active Substance: LIOTHYRONINE SODIUM
     Dosage: UNK

REACTIONS (5)
  - Asthenia [Unknown]
  - Malaise [Unknown]
  - Weight loss poor [Unknown]
  - Alopecia [Unknown]
  - Dyspnoea [Unknown]
